FAERS Safety Report 5735786-7 (Version None)
Quarter: 2008Q2

REPORT INFORMATION
  Report Type: 
  Country: None (occurrence: None)
  Receive Date: 20080508
  Receipt Date: 20080508
  Transmission Date: 20081010
  Serious: Yes (Life-Threatening, Hospitalization, Other)
  Sender: FDA-Public Use
  Company Number: None

PATIENT
  Age: 37 Year
  Sex: Male
  Weight: 81.6475 kg

DRUGS (1)
  1. ACCUTANE [Suspect]
     Indication: ACNE
     Dosage: 2 PER DAY  2 PER DAY
     Dates: start: 19850101, end: 19851029

REACTIONS (4)
  - FEELING ABNORMAL [None]
  - ILL-DEFINED DISORDER [None]
  - PAIN [None]
  - SUICIDAL IDEATION [None]
